FAERS Safety Report 6828724-7 (Version None)
Quarter: 2010Q3

REPORT INFORMATION
  Report Type: 
  Country: None (occurrence: None)
  Receive Date: 20100709
  Receipt Date: 20070217
  Transmission Date: 20110219
  Serious: No
  Sender: FDA-Public Use
  Company Number: US-PFIZER INC-2007010313

PATIENT
  Sex: Female
  Weight: 65.32 kg

DRUGS (7)
  1. CHANTIX [Suspect]
     Indication: SMOKING CESSATION THERAPY
     Dates: start: 20070101
  2. VICODIN [Suspect]
     Indication: INTERVERTEBRAL DISC PROTRUSION
  3. VITAMINS [Concomitant]
  4. MAGNESIUM [Concomitant]
  5. VITAMIN C [Concomitant]
  6. VALIUM [Concomitant]
     Indication: MUSCLE SPASMS
  7. PRILOSEC [Concomitant]
     Indication: GASTRIC DISORDER

REACTIONS (10)
  - ABNORMAL DREAMS [None]
  - ANXIETY [None]
  - CHEST PAIN [None]
  - DIZZINESS [None]
  - DYSPNOEA [None]
  - HEADACHE [None]
  - MUSCLE SPASMS [None]
  - NAUSEA [None]
  - PAIN [None]
  - SEDATION [None]
